FAERS Safety Report 7998307-4 (Version None)
Quarter: 2011Q4

REPORT INFORMATION
  Report Type: 
  Country: None (occurrence: None)
  Receive Date: 20111221
  Receipt Date: 20110628
  Transmission Date: 20120403
  Serious: No
  Sender: FDA-Public Use
  Company Number: US-GLAXOSMITHKLINE-A0933468A

PATIENT
  Age: 69 Year
  Sex: Male

DRUGS (12)
  1. ASPIRIN [Concomitant]
  2. OXYCODONE HCL [Concomitant]
  3. PRAVASTATIN [Concomitant]
  4. TIZANIDINE HCL [Concomitant]
  5. OXYCONTIN [Concomitant]
  6. ENALAPRIL MALEATE [Concomitant]
  7. PHENERGAN [Concomitant]
  8. LOVAZA [Suspect]
     Indication: BLOOD TRIGLYCERIDES INCREASED
     Dosage: 2CAP TWICE PER DAY
     Route: 048
     Dates: start: 20110525
  9. LUNESTA [Concomitant]
  10. GABAPENTIN [Concomitant]
  11. AMITRIPTYLINE HCL [Concomitant]
  12. ATENOLOL [Concomitant]

REACTIONS (1)
  - DIARRHOEA [None]
